FAERS Safety Report 5504949-8 (Version None)
Quarter: 2007Q4

REPORT INFORMATION
  Report Type: 
  Country: None (occurrence: None)
  Receive Date: 20071031
  Receipt Date: 20071019
  Transmission Date: 20080405
  Serious: Yes (Hospitalization, Other)
  Sender: FDA-Public Use
  Company Number: 2007SP019980

PATIENT
  Age: 52 Year
  Sex: Female
  Weight: 70.3075 kg

DRUGS (16)
  1. PEG-INTRON [Suspect]
     Indication: HEPATITIS C
     Dosage: 120 MCG;QW;SC
     Route: 058
     Dates: start: 20061102, end: 20070906
  2. RIBAVIRIN [Suspect]
     Indication: HEPATITIS C
     Dosage: 1000 MG;QD;PO
     Route: 048
     Dates: start: 20061102, end: 20070906
  3. VICODIN (CON.) [Concomitant]
  4. CLONAZEPAM (CON.) [Concomitant]
  5. CORGARD (CON.) [Concomitant]
  6. CYMBALTA (CON.) [Concomitant]
  7. FIORINAL (CON.) [Concomitant]
  8. GLYBURIDE (CON.) [Concomitant]
  9. HYOSCYAMINE (CON.) [Concomitant]
  10. LIPITOR (CON.) [Concomitant]
  11. MECLIZINE (CON.) [Concomitant]
  12. METFORMIN (CON.) [Concomitant]
  13. NEXIUM (CON.) [Concomitant]
  14. PROMETHAZINE (CON.) [Concomitant]
  15. SINGULAIR (CON.) [Concomitant]
  16. IBUPROFEN (CON.) [Concomitant]

REACTIONS (22)
  - ANOREXIA [None]
  - ANXIETY [None]
  - ASTHENIA [None]
  - BALANCE DISORDER [None]
  - BRAIN OEDEMA [None]
  - CRYING [None]
  - DEPRESSION [None]
  - DIZZINESS [None]
  - DRY MOUTH [None]
  - FALL [None]
  - FATIGUE [None]
  - GAIT DISTURBANCE [None]
  - HYDROCEPHALUS [None]
  - MEMORY IMPAIRMENT [None]
  - MOOD ALTERED [None]
  - MUSCLE ATROPHY [None]
  - NAUSEA [None]
  - ROAD TRAFFIC ACCIDENT [None]
  - THINKING ABNORMAL [None]
  - URINARY RETENTION [None]
  - VOMITING [None]
  - WEIGHT DECREASED [None]
